FAERS Safety Report 8058907-2 (Version None)
Quarter: 2012Q1

REPORT INFORMATION
  Report Type: 
  Country: None (occurrence: None)
  Receive Date: 20120120
  Receipt Date: 20111012
  Transmission Date: 20120608
  Serious: No
  Sender: FDA-Public Use
  Company Number: US-BRISTOL-MYERS SQUIBB COMPANY-16124851

PATIENT
  Sex: Male

DRUGS (1)
  1. YERVOY [Suspect]
     Dosage: NO OF INF:3

REACTIONS (7)
  - CONTUSION [None]
  - SYNCOPE [None]
  - EYE PRURITUS [None]
  - FALL [None]
  - PRURITUS [None]
  - SLUGGISHNESS [None]
  - SCRATCH [None]
